FAERS Safety Report 20720943 (Version 1)
Quarter: 2022Q2

REPORT INFORMATION
  Report Type: Spontaneous
  Country: US (occurrence: US)
  Receive Date: 20220418
  Receipt Date: 20220418
  Transmission Date: 20220721
  Serious: No
  Sender: FDA-Public Use
  Company Number: US-PFIZER INC-2021371933

PATIENT
  Age: 70 Year
  Sex: Male

DRUGS (2)
  1. RETACRIT [Suspect]
     Active Substance: EPOETIN ALFA-EPBX
     Indication: Anaemia of chronic disease
     Dosage: 10000 IU, WEEKLY [10,000; EVERY WEEK DOSING]/ [10,000 UNITS]
  2. RETACRIT [Suspect]
     Active Substance: EPOETIN ALFA-EPBX
     Indication: Chronic kidney disease

REACTIONS (3)
  - Off label use [Unknown]
  - Speech disorder [Unknown]
  - Hypoacusis [Unknown]
